FAERS Safety Report 4822115-6 (Version None)
Quarter: 2005Q4

REPORT INFORMATION
  Report Type: 
  Country: None (occurrence: None)
  Receive Date: 20051103
  Receipt Date: 20051018
  Transmission Date: 20060501
  Serious: Yes (Hospitalization)
  Sender: FDA-Public Use
  Company Number: DE_050616142

PATIENT
  Age: 63 Year
  Sex: Male
  Weight: 75.7507 kg

DRUGS (4)
  1. CIALIS [Suspect]
     Indication: ILL-DEFINED DISORDER
     Dosage: 20 MG
     Dates: start: 20040601, end: 20041001
  2. THYROXIN (LEVOTHYROXINE SODIUM) [Concomitant]
  3. ACETYLSALICYLIC ACID SRT [Concomitant]
  4. MAGNETIC FIELD THERAPY [Concomitant]

REACTIONS (2)
  - GRAND MAL CONVULSION [None]
  - PROCEDURAL COMPLICATION [None]
